FAERS Safety Report 7963148-0 (Version None)
Quarter: 2011Q4

REPORT INFORMATION
  Report Type: 
  Country: None (occurrence: None)
  Receive Date: 20111207
  Receipt Date: 20071205
  Transmission Date: 20120403
  Serious: Yes (Other)
  Sender: FDA-Public Use
  Company Number: PHHY2007BR09793

PATIENT
  Age: 11 Year
  Sex: Male

DRUGS (1)
  1. TRILEPTAL [Suspect]
     Indication: EPILEPSY
     Dosage: 5ML IN THE MORNING AND 5ML AT NIGHT
     Route: 048

REACTIONS (4)
  - CONVULSION [None]
  - PHARYNGEAL OEDEMA [None]
  - HYPOAESTHESIA [None]
  - TREMOR [None]
